FAERS Safety Report 4396516-7 (Version None)
Quarter: 2004Q3

REPORT INFORMATION
  Report Type: 
  Country: None (occurrence: None)
  Receive Date: 20040709
  Receipt Date: 20040625
  Transmission Date: 20050211
  Serious: Yes (Death)
  Sender: FDA-Public Use
  Company Number: FR-JNJFOC-20040607217

PATIENT
  Age: 38 Year
  Sex: Male

DRUGS (3)
  1. PROPULSID [Suspect]
     Indication: GASTROOESOPHAGEAL REFLUX DISEASE
     Dosage: 5 MG, 3 IN 1 DAY, ORAL
     Route: 048
     Dates: start: 20030709, end: 20040317
  2. PROPULSID [Suspect]
     Indication: OESOPHAGITIS
     Dosage: 5 MG, 3 IN 1 DAY, ORAL
     Route: 048
     Dates: start: 20030709, end: 20040317
  3. PROPULSID [Suspect]
     Indication: PNEUMONIA ASPIRATION
     Dosage: 5 MG, 3 IN 1 DAY, ORAL
     Route: 048
     Dates: start: 20030709, end: 20040317

REACTIONS (2)
  - BRONCHOPNEUMOPATHY [None]
  - INFECTION [None]
